FAERS Safety Report 15896996 (Version 3)
Quarter: 2019Q2

REPORT INFORMATION
  Report Type: Spontaneous
  Country: US (occurrence: US)
  Receive Date: 20190131
  Receipt Date: 20190402
  Transmission Date: 20190711
  Serious: Yes (Disabling, Other)
  Sender: FDA-Public Use
  Company Number: US-OTSUKA-2019_002698

PATIENT
  Sex: Male

DRUGS (4)
  1. ABILIFY [Suspect]
     Active Substance: ARIPIPRAZOLE
     Dosage: 15 MG, UNK
     Route: 065
  2. ABILIFY [Suspect]
     Active Substance: ARIPIPRAZOLE
     Dosage: 20 MG, UNK
     Route: 065
     Dates: end: 201410
  3. ABILIFY [Suspect]
     Active Substance: ARIPIPRAZOLE
     Dosage: 10 MG, UNK
     Route: 065
  4. ABILIFY [Suspect]
     Active Substance: ARIPIPRAZOLE
     Indication: BIPOLAR DISORDER
     Dosage: 5 MG, UNK
     Route: 065
     Dates: start: 200601

REACTIONS (17)
  - Emotional distress [Unknown]
  - Fear [Unknown]
  - Compulsive shopping [Recovered/Resolved]
  - Suicide attempt [Recovered/Resolved]
  - Gambling disorder [Recovered/Resolved]
  - Suicidal ideation [Recovered/Resolved]
  - Injury [Unknown]
  - Eating disorder [Recovered/Resolved]
  - Physical disability [Unknown]
  - Anhedonia [Unknown]
  - Anxiety [Unknown]
  - Pain [Unknown]
  - Loss of employment [Unknown]
  - Social problem [Unknown]
  - Economic problem [Unknown]
  - Bankruptcy [Unknown]
  - Mental impairment [Unknown]

NARRATIVE: CASE EVENT DATE: 200908
